FAERS Safety Report 11025547 (Version 1)
Quarter: 2015Q2

REPORT INFORMATION
  Report Type: Spontaneous
  Country: CA (occurrence: CA)
  Receive Date: 20150414
  Receipt Date: 20150414
  Transmission Date: 20150821
  Serious: Yes (Hospitalization, Congenital Anomaly, Other)
  Sender: FDA-Public Use
  Company Number: CA-TEVA-554281ACC

PATIENT
  Age: 49 Year
  Weight: 14 kg

DRUGS (1)
  1. NYSTATIN ORAL SUSPENSION 100000UNIT/ML USP [Suspect]
     Active Substance: NYSTATIN
     Indication: ORAL CANDIDIASIS
     Dosage: 45 ML DAILY; FORM STRENGTH: 100000 UNIT/ML
     Route: 048

REACTIONS (5)
  - Face oedema [Not Recovered/Not Resolved]
  - Pruritus [Not Recovered/Not Resolved]
  - Skin exfoliation [Not Recovered/Not Resolved]
  - Rash [Not Recovered/Not Resolved]
  - Oedema peripheral [Not Recovered/Not Resolved]
